FAERS Safety Report 23182236 (Version 1)
Quarter: 2023Q4

REPORT INFORMATION
  Report Type: Spontaneous
  Country: US (occurrence: None)
  Receive Date: 20231113
  Receipt Date: 20231113
  Transmission Date: 20240109
  Serious: Yes (Hospitalization, Disabling, Other)
  Sender: FDA-Public Use
  Company Number: None

PATIENT

DRUGS (6)
  1. SUBOXONE [Suspect]
     Active Substance: BUPRENORPHINE HYDROCHLORIDE\NALOXONE HYDROCHLORIDE
     Indication: Drug use disorder
     Dosage: OTHER ROUTE : UNDER TONGUE (FILM);?
     Route: 050
     Dates: start: 202309
  2. TYLENOL [Concomitant]
     Active Substance: ACETAMINOPHEN
  3. Ibuprofen w pepcid AC [Concomitant]
  4. MELOXICAM [Concomitant]
  5. Slippery Elm Tea [Concomitant]
  6. MASTIC GUM [Concomitant]

REACTIONS (2)
  - Vomiting [None]
  - Tooth loss [None]

NARRATIVE: CASE EVENT DATE: 20230901
